FAERS Safety Report 10954648 (Version 1)
Quarter: 2015Q1

REPORT INFORMATION
  Report Type: Spontaneous
  Country: US (occurrence: US)
  Receive Date: 20150325
  Receipt Date: 20150325
  Transmission Date: 20150721
  Serious: No
  Sender: FDA-Public Use
  Company Number: US-ELI_LILLY_AND_COMPANY-US201502009168

PATIENT
  Age: 78 Year
  Sex: Male

DRUGS (13)
  1. TIMOLOL [Concomitant]
     Active Substance: TIMOLOL
  2. FENOFIBRATE. [Concomitant]
     Active Substance: FENOFIBRATE
     Dosage: 160 MG, UNK
  3. CREON [Concomitant]
     Active Substance: PANCRELIPASE AMYLASE\PANCRELIPASE LIPASE\PANCRELIPASE PROTEASE
  4. MOBIC [Concomitant]
     Active Substance: MELOXICAM
     Dosage: UNK, 3/W
  5. PROPAFENON                         /00546301/ [Concomitant]
  6. CIALIS [Suspect]
     Active Substance: TADALAFIL
     Indication: ERECTILE DYSFUNCTION
     Dosage: 20 MG, PRN
     Route: 065
     Dates: start: 201501, end: 20150212
  7. ATENOLOL. [Concomitant]
     Active Substance: ATENOLOL
     Dosage: 50 MG, UNK
  8. ALLOPURINOL. [Concomitant]
     Active Substance: ALLOPURINOL
     Dosage: 300 MG, UNK
  9. TRAVATAN [Concomitant]
     Active Substance: TRAVOPROST
  10. PRILOSEC [Concomitant]
     Active Substance: OMEPRAZOLE MAGNESIUM
  11. WARFARIN SODIUM. [Concomitant]
     Active Substance: WARFARIN SODIUM
  12. PREDNISOLONE. [Concomitant]
     Active Substance: PREDNISOLONE
  13. VSL 3 [Concomitant]

REACTIONS (3)
  - Rash papular [Recovering/Resolving]
  - Flushing [Unknown]
  - Rash pruritic [Recovering/Resolving]

NARRATIVE: CASE EVENT DATE: 20150112
